FAERS Safety Report 10621083 (Version 2)
Quarter: 2015Q1

REPORT INFORMATION
  Report Type: Spontaneous
  Country: FR (occurrence: FR)
  Receive Date: 20141203
  Receipt Date: 20150102
  Transmission Date: 20150720
  Serious: Yes (Hospitalization)
  Sender: FDA-Public Use
  Company Number: FR-ROCHE-1497644

PATIENT
  Age: 57 Year
  Sex: Female

DRUGS (1)
  1. ZELBORAF [Suspect]
     Active Substance: VEMURAFENIB
     Indication: METASTATIC MALIGNANT MELANOMA
     Route: 065

REACTIONS (4)
  - Gingivitis [Recovered/Resolved]
  - Genital rash [Recovered/Resolved]
  - Hypersensitivity [Recovered/Resolved]
  - Leukoplakia oral [Recovered/Resolved]
